FAERS Safety Report 12381255 (Version 4)
Quarter: 2020Q3

REPORT INFORMATION
  Report Type: Report from Study
  Country: GB (occurrence: GB)
  Receive Date: 20160518
  Receipt Date: 20200729
  Transmission Date: 20201102
  Serious: Yes (Other)
  Sender: FDA-Public Use
  Company Number: GB-SA-2016SA090933

PATIENT
  Age: 46 Year
  Sex: Female
  Weight: 64.5 kg

DRUGS (9)
  1. ALEMTUZUMAB [Suspect]
     Active Substance: ALEMTUZUMAB
     Indication: RELAPSING-REMITTING MULTIPLE SCLEROSIS
     Dosage: INTENDED DOSE OF 60 MG
     Route: 041
     Dates: start: 20080421, end: 20080425
  2. ALEMTUZUMAB [Suspect]
     Active Substance: ALEMTUZUMAB
     Dosage: INTENDED DOSE OF 36 MG
     Route: 041
     Dates: start: 20100628, end: 20100630
  3. GLUCOSAMINE [Concomitant]
     Active Substance: GLUCOSAMINE
     Indication: PROPHYLAXIS
     Dosage: 1 DF,UNK
     Route: 048
     Dates: start: 201207
  4. DOXYCYCLINE. [Concomitant]
     Active Substance: DOXYCYCLINE
     Indication: DRUG THERAPY
     Dosage: 100 MG,QD
     Route: 048
     Dates: start: 20150626
  5. CALCIUM [Concomitant]
     Active Substance: CALCIUM
     Indication: PROPHYLAXIS
     Dosage: 1 DF,UNK
     Route: 048
     Dates: start: 20130120
  6. MIRENA [Concomitant]
     Active Substance: LEVONORGESTREL
     Indication: PROPHYLAXIS
     Dosage: DOSE; 1 MD; INTRAUTERINE
     Dates: start: 20100504
  7. ALEMTUZUMAB [Suspect]
     Active Substance: ALEMTUZUMAB
     Dosage: INTENDED DOSE OF 36 MG
     Route: 041
     Dates: start: 20090420, end: 20090422
  8. ALEMTUZUMAB [Suspect]
     Active Substance: ALEMTUZUMAB
     Dosage: 12 MG,QD
     Route: 041
     Dates: start: 20151221, end: 20151223
  9. ERGOCALCIFEROL. [Concomitant]
     Active Substance: ERGOCALCIFEROL
     Indication: PROPHYLAXIS
     Dosage: 5000 IU,UNK
     Route: 048
     Dates: start: 201301

REACTIONS (2)
  - Lymphocyte count decreased [Not Recovered/Not Resolved]
  - Tuberculosis [Recovered/Resolved]

NARRATIVE: CASE EVENT DATE: 20160420
